FAERS Safety Report 11864632 (Version 2)
Quarter: 2016Q4

REPORT INFORMATION
  Report Type: Spontaneous
  Country: US (occurrence: US)
  Receive Date: 20151223
  Receipt Date: 20161207
  Transmission Date: 20170206
  Serious: No
  Sender: FDA-Public Use
  Company Number: PHEH2015US026668

PATIENT
  Age: 62 Year
  Sex: Female

DRUGS (1)
  1. TASIGNA [Suspect]
     Active Substance: NILOTINIB
     Indication: CHRONIC MYELOID LEUKAEMIA
     Route: 065

REACTIONS (16)
  - Feeling abnormal [Unknown]
  - Fatigue [Unknown]
  - Apathy [Unknown]
  - Hyperhidrosis [Unknown]
  - Disturbance in attention [Unknown]
  - Nausea [Unknown]
  - Arthralgia [Unknown]
  - Alopecia [Unknown]
  - Weight increased [Unknown]
  - Paraesthesia [Unknown]
  - Dry mouth [Unknown]
  - Abdominal distension [Unknown]
  - Myalgia [Unknown]
  - Muscle spasms [Unknown]
  - Pain of skin [Unknown]
  - Erythema [Unknown]
